FAERS Safety Report 8967836 (Version 1)
Quarter: 2012Q4

REPORT INFORMATION
  Report Type: Spontaneous
  Country: IT (occurrence: None)
  Receive Date: 20121207
  Receipt Date: 20121207
  Transmission Date: 20130627
  Serious: Yes (Other)
  Sender: FDA-Public Use
  Company Number: GER/ITL/12/0026842

PATIENT
  Age: 85 Year
  Sex: Female
  Weight: 60 kg

DRUGS (5)
  1. LEVETIRACETAM [Suspect]
     Indication: EPILEPSY
     Route: 048
     Dates: start: 20121001, end: 20121030
  2. COEFFERALGAN [Concomitant]
  3. RIOPAN (MAGALDRATE) [Concomitant]
  4. LUMIGAN (BIMATOPROST) [Concomitant]
  5. FOSFOMYCIN TROMETAMOL SALT (FOSFOMYCIN TROMETAMOL) [Concomitant]

REACTIONS (4)
  - Quality of life decreased [None]
  - Agitation [None]
  - Insomnia [None]
  - Mood altered [None]
